FAERS Safety Report 13657326 (Version 1)
Quarter: 2017Q2

REPORT INFORMATION
  Report Type: Spontaneous
  Country: US (occurrence: US)
  Receive Date: 20170615
  Receipt Date: 20170615
  Transmission Date: 20170830
  Serious: No
  Sender: FDA-Public Use
  Company Number: US-PFIZER INC-2017243731

PATIENT
  Age: 50 Year
  Sex: Female
  Weight: 47 kg

DRUGS (6)
  1. PREMARIN [Suspect]
     Active Substance: ESTROGENS, CONJUGATED
     Indication: ATROPHIC VULVOVAGINITIS
     Dosage: UNK (1/2 APPLICATOR FOR 3 TIMES/WEEK)
     Route: 067
  2. PREMARIN [Suspect]
     Active Substance: ESTROGENS, CONJUGATED
     Indication: VAGINAL HAEMORRHAGE
     Dosage: UNK, (TWO DAYS A WEEK, CREAM)
     Dates: start: 20170606
  3. SPIRIVA [Concomitant]
     Active Substance: TIOTROPIUM BROMIDE MONOHYDRATE
     Indication: CHRONIC OBSTRUCTIVE PULMONARY DISEASE
     Dosage: 1 DF, 1X/DAY, (ONE PUFF, ONE TIME A DAY)
     Route: 055
  4. ADVAIR HFA [Concomitant]
     Active Substance: FLUTICASONE PROPIONATE\SALMETEROL XINAFOATE
     Indication: CHRONIC OBSTRUCTIVE PULMONARY DISEASE
     Dosage: 1 DF, 2X/DAY, (250/50, ONE PUFF IN MORNING AND ONE PUFF AT NIGHT)
     Route: 055
  5. PREMARIN [Suspect]
     Active Substance: ESTROGENS, CONJUGATED
     Indication: MENOPAUSE
  6. PREMARIN [Suspect]
     Active Substance: ESTROGENS, CONJUGATED
     Indication: HORMONE LEVEL ABNORMAL

REACTIONS (7)
  - Glossodynia [Not Recovered/Not Resolved]
  - Tongue disorder [Not Recovered/Not Resolved]
  - Vulvovaginal mycotic infection [Unknown]
  - Palpitations [Unknown]
  - Tongue discomfort [Not Recovered/Not Resolved]
  - Hot flush [Unknown]
  - Product use issue [Unknown]

NARRATIVE: CASE EVENT DATE: 20170607
